FAERS Safety Report 14799715 (Version 1)
Quarter: 2018Q2

REPORT INFORMATION
  Report Type: Spontaneous
  Country: US (occurrence: US)
  Receive Date: 20180424
  Receipt Date: 20180424
  Transmission Date: 20180711
  Serious: Yes (Other)
  Sender: FDA-Public Use
  Company Number: US-ENDO PHARMACEUTICALS INC-2018-016418

PATIENT
  Age: 69 Year
  Sex: Male
  Weight: 90.7 kg

DRUGS (1)
  1. TESTOPEL [Suspect]
     Active Substance: TESTOSTERONE
     Indication: BLOOD TESTOSTERONE DECREASED
     Dosage: FIVE PELLETS (375 MG), ONCE
     Route: 030
     Dates: start: 20180124

REACTIONS (6)
  - Presyncope [Recovered/Resolved]
  - Limb discomfort [Unknown]
  - Wrong technique in product usage process [Recovered/Resolved]
  - Implant site pain [Recovered/Resolved]
  - Procedural pain [Recovered/Resolved]
  - Incorrect route of drug administration [Recovered/Resolved]

NARRATIVE: CASE EVENT DATE: 20180124
